FAERS Safety Report 20475767 (Version 3)
Quarter: 2022Q1

REPORT INFORMATION
  Report Type: Spontaneous
  Country: US (occurrence: US)
  Receive Date: 20220215
  Receipt Date: 20220316
  Transmission Date: 20220423
  Serious: Yes (Hospitalization, Other)
  Sender: FDA-Public Use
  Company Number: US-PFIZER INC-202200223916

PATIENT
  Age: 17 Year
  Sex: Male
  Weight: 44.2 kg

DRUGS (10)
  1. METHOTREXATE SODIUM [Suspect]
     Active Substance: METHOTREXATE SODIUM
     Indication: Leukaemia
     Dosage: UNK
     Route: 037
     Dates: start: 20211014, end: 20211014
  2. METHOTREXATE SODIUM [Suspect]
     Active Substance: METHOTREXATE SODIUM
     Dosage: UNK
     Route: 037
     Dates: start: 20211118, end: 20211118
  3. METHOTREXATE SODIUM [Suspect]
     Active Substance: METHOTREXATE SODIUM
     Dosage: UNK
     Route: 037
     Dates: start: 20211122, end: 20211122
  4. METHOTREXATE SODIUM [Suspect]
     Active Substance: METHOTREXATE SODIUM
     Dosage: UNK
     Route: 037
     Dates: start: 20211129, end: 20211129
  5. METHOTREXATE SODIUM [Suspect]
     Active Substance: METHOTREXATE SODIUM
     Dosage: UNK
     Route: 037
     Dates: start: 20211206, end: 20211206
  6. METHOTREXATE SODIUM [Suspect]
     Active Substance: METHOTREXATE SODIUM
     Dosage: UNK
     Route: 037
     Dates: start: 20211213, end: 20211213
  7. METHOTREXATE SODIUM [Suspect]
     Active Substance: METHOTREXATE SODIUM
     Dosage: 15 MG
     Route: 037
     Dates: start: 20220124, end: 20220124
  8. METHOTREXATE SODIUM [Suspect]
     Active Substance: METHOTREXATE SODIUM
     Dosage: 7350 MG (HIGH-DOSE, OVER 24 HOURS)
     Route: 042
     Dates: start: 20220124, end: 20220125
  9. METHOTREXATE SODIUM [Suspect]
     Active Substance: METHOTREXATE SODIUM
     Dosage: UNK
     Route: 042
  10. METHOTREXATE SODIUM [Suspect]
     Active Substance: METHOTREXATE SODIUM
     Dosage: UNK
     Route: 037

REACTIONS (18)
  - Neurotoxicity [Unknown]
  - Central venous catheterisation [Unknown]
  - Cerebrovascular accident [Unknown]
  - Posterior reversible encephalopathy syndrome [Unknown]
  - Weight decreased [Unknown]
  - Hemiparesis [Unknown]
  - Transaminases increased [Unknown]
  - Diffusion-weighted brain MRI abnormal [Unknown]
  - Drug clearance decreased [Unknown]
  - Liver function test increased [Unknown]
  - Nausea [Unknown]
  - Vomiting [Unknown]
  - Pyrexia [Unknown]
  - Nasal congestion [Unknown]
  - COVID-19 [Unknown]
  - Dysarthria [Unknown]
  - Dysphagia [Recovered/Resolved]
  - Eating disorder [Unknown]

NARRATIVE: CASE EVENT DATE: 20220101
